FAERS Safety Report 21899638 (Version 2)
Quarter: 2023Q2

REPORT INFORMATION
  Report Type: Spontaneous
  Country: US (occurrence: US)
  Receive Date: 20230123
  Receipt Date: 20230424
  Transmission Date: 20230722
  Serious: Yes (Other)
  Sender: FDA-Public Use
  Company Number: US-BRISTOL-MYERS SQUIBB COMPANY-2023-009916

PATIENT
  Age: 61 Year
  Sex: Female

DRUGS (3)
  1. ORENCIA [Suspect]
     Active Substance: ABATACEPT
     Indication: Rheumatoid arthritis
     Route: 058
     Dates: start: 202301
  2. ORENCIA [Suspect]
     Active Substance: ABATACEPT
     Indication: Orthostatic hypotension
  3. ORENCIA [Suspect]
     Active Substance: ABATACEPT
     Indication: Rheumatoid vasculitis

REACTIONS (1)
  - Autonomic neuropathy [Unknown]
